FAERS Safety Report 24747390 (Version 3)
Quarter: 2025Q1

REPORT INFORMATION
  Report Type: Spontaneous
  Country: IQ (occurrence: IQ)
  Receive Date: 20241218
  Receipt Date: 20250220
  Transmission Date: 20250408
  Serious: Yes (Death, Hospitalization, Other)
  Sender: SANOFI AVENTIS
  Company Number: IQ-SA-2024SA370593

PATIENT
  Age: 39 Year
  Sex: Male

DRUGS (4)
  1. SARCLISA [Suspect]
     Active Substance: ISATUXIMAB-IRFC
     Indication: Plasma cell myeloma refractory
     Dosage: 10 MG/KG, QW
     Route: 042
     Dates: start: 20241016
  2. SARCLISA [Suspect]
     Active Substance: ISATUXIMAB-IRFC
     Dates: start: 20241211
  3. POMALIDOMIDE [Concomitant]
     Active Substance: POMALIDOMIDE
     Indication: Plasma cell myeloma refractory
     Dosage: 4 MG, QD
     Route: 048
     Dates: start: 20241016
  4. DEXAMETHASONE [Concomitant]
     Active Substance: DEXAMETHASONE
     Indication: Plasma cell myeloma refractory
     Dosage: 40 MG, QW
     Route: 048
     Dates: start: 20241016

REACTIONS (7)
  - Depressed level of consciousness [Fatal]
  - Respiratory distress [Fatal]
  - Pneumonia aspiration [Fatal]
  - Seizure [Unknown]
  - Neutropenia [Unknown]
  - Hypocalcaemia [Recovered/Resolved]
  - Gastrointestinal tube insertion [Unknown]

NARRATIVE: CASE EVENT DATE: 20241205
